FAERS Safety Report 5988885-9 (Version None)
Quarter: 2008Q4

REPORT INFORMATION
  Report Type: 
  Country: None (occurrence: None)
  Receive Date: 20081208
  Receipt Date: 20081208
  Transmission Date: 20090506
  Serious: No
  Sender: FDA-Public Use
  Company Number: None

PATIENT
  Sex: Female
  Weight: 86.1834 kg

DRUGS (1)
  1. TRICOR [Suspect]
     Indication: HYPERTRIGLYCERIDAEMIA
     Dosage: 1 DAILY PO
     Route: 048
     Dates: start: 20080428, end: 20081127

REACTIONS (3)
  - BLISTER [None]
  - ERYTHEMA [None]
  - EXCORIATION [None]
